FAERS Safety Report 17282860 (Version 1)
Quarter: 2020Q1

REPORT INFORMATION
  Report Type: Spontaneous
  Country: US (occurrence: US)
  Receive Date: 20191230
  Receipt Date: 20191230
  Transmission Date: 20200409
  Serious: No
  Sender: FDA-Public Use
  Company Number: None

PATIENT
  Age: 48 Year
  Sex: Female

DRUGS (3)
  1. XELJANZ XR [Suspect]
     Active Substance: TOFACITINIB CITRATE
     Indication: BREAST NEOPLASM
     Route: 048
     Dates: start: 20180711
  2. XELJANZ XR [Suspect]
     Active Substance: TOFACITINIB CITRATE
     Indication: NEOPLASM
     Route: 048
     Dates: start: 20180711
  3. XELJANZ XR [Suspect]
     Active Substance: TOFACITINIB CITRATE
     Indication: RHEUMATOID ARTHRITIS
     Route: 048
     Dates: start: 20180711

REACTIONS (4)
  - Electric shock [None]
  - Blood pressure decreased [None]
  - Sensory disturbance [None]
  - Hyperacusis [None]

NARRATIVE: CASE EVENT DATE: 20191128
